FAERS Safety Report 9310748 (Version 1)
Quarter: 2013Q2

REPORT INFORMATION
  Report Type: Spontaneous
  Country: ES (occurrence: ES)
  Receive Date: 20130528
  Receipt Date: 20130528
  Transmission Date: 20140414
  Serious: Yes (Other)
  Sender: FDA-Public Use
  Company Number: ES-AMGEN-ESPSP2013015221

PATIENT
  Age: 6 Year
  Sex: Male
  Weight: 29.6 kg

DRUGS (2)
  1. NPLATE [Suspect]
     Indication: IDIOPATHIC THROMBOCYTOPENIC PURPURA
     Dosage: 1 MUG/KG, QWK
     Route: 058
     Dates: start: 20121022, end: 20130121
  2. GAMMAGLOBULIN [Concomitant]
     Indication: PLATELET COUNT DECREASED
     Dosage: UNK
     Dates: start: 20121022

REACTIONS (1)
  - Therapeutic response decreased [Unknown]
